FAERS Safety Report 4503226-1 (Version None)
Quarter: 2004Q4

REPORT INFORMATION
  Report Type: 
  Country: None (occurrence: None)
  Receive Date: 20041112
  Receipt Date: 20041101
  Transmission Date: 20050328
  Serious: Yes (Other)
  Sender: FDA-Public Use
  Company Number: 2004242683GB

PATIENT
  Age: 41 Year
  Sex: Female
  Weight: 87 kg

DRUGS (1)
  1. BEXTRA [Suspect]
     Indication: ARTHRALGIA
     Dosage: 10 MG, QD
     Route: 048
     Dates: start: 20040729, end: 20041004

REACTIONS (1)
  - AFFECTIVE DISORDER [None]
